FAERS Safety Report 6685093-3 (Version None)
Quarter: 2010Q2

REPORT INFORMATION
  Report Type: 
  Country: None (occurrence: None)
  Receive Date: 20100416
  Receipt Date: 20100407
  Transmission Date: 20101027
  Serious: Yes (Hospitalization)
  Sender: FDA-Public Use
  Company Number: B0647355A

PATIENT
  Sex: Female
  Weight: 93.5 kg

DRUGS (15)
  1. LAPATINIB [Suspect]
     Dosage: 1250MG PER DAY
     Route: 048
     Dates: start: 20100330
  2. DOCETAXEL [Suspect]
     Dosage: 145MG CYCLIC
     Route: 042
     Dates: start: 20100330
  3. SIMVASTATIN [Concomitant]
     Dosage: 40MG AT NIGHT
     Route: 048
  4. CALCICHEW [Concomitant]
     Route: 048
  5. SODIUM DOCUSATE [Concomitant]
     Dosage: 200MG TWICE PER DAY
     Route: 048
  6. FUROSEMIDE [Concomitant]
     Dosage: 40MG TWICE PER DAY
     Route: 048
  7. METOCLOPRAMIDE HYDROCHLORIDE [Concomitant]
     Dosage: 20MG AS REQUIRED
     Route: 048
  8. NYSTATIN [Concomitant]
     Route: 061
  9. ASPIRIN [Concomitant]
     Dosage: 75MG PER DAY
     Route: 048
  10. AMITRIPTYLINE HCL [Concomitant]
     Dosage: 25MG AT NIGHT
  11. ENOXAPARIN SODIUM [Concomitant]
     Route: 058
     Dates: start: 20100403
  12. SANDO-K [Concomitant]
     Route: 048
     Dates: start: 20100405
  13. COLCHICINE [Concomitant]
     Route: 048
     Dates: start: 20100406
  14. FLUCONAZOLE [Concomitant]
     Route: 048
     Dates: start: 20100404, end: 20100411
  15. DOMPERIDONE [Concomitant]
     Dates: start: 20100405

REACTIONS (5)
  - ARTHRALGIA [None]
  - FATIGUE [None]
  - LETHARGY [None]
  - MALAISE [None]
  - NAUSEA [None]
